FAERS Safety Report 19030121 (Version 10)
Quarter: 2022Q2

REPORT INFORMATION
  Report Type: Report from Study
  Country: JP (occurrence: JP)
  Receive Date: 20210319
  Receipt Date: 20220523
  Transmission Date: 20220721
  Serious: Yes (Hospitalization)
  Sender: FDA-Public Use
  Company Number: NVSJ2021JP001886

PATIENT
  Age: 2 Month
  Sex: Male
  Weight: 5.2 kg

DRUGS (6)
  1. ZOLGENSMA [Suspect]
     Active Substance: ONASEMNOGENE ABEPARVOVEC-XIOI
     Indication: Spinal muscular atrophy
     Dosage: 30.3 ML
     Route: 041
     Dates: start: 20210128, end: 20210128
  2. PREDONINE [Concomitant]
     Active Substance: PREDNISOLONE
     Indication: Product used for unknown indication
     Dosage: 5 MG
     Route: 041
     Dates: start: 20210127, end: 20210205
  3. PREDONINE [Concomitant]
     Active Substance: PREDNISOLONE
     Dosage: 1 MG/KG, QD
     Route: 065
     Dates: start: 20210127, end: 20210226
  4. PREDONINE [Concomitant]
     Active Substance: PREDNISOLONE
     Dosage: 0.5 MG/KG, QD
     Route: 065
     Dates: start: 20210227, end: 20210312
  5. PREDONINE [Concomitant]
     Active Substance: PREDNISOLONE
     Dosage: 0.25 MG/KG, QD
     Route: 065
     Dates: start: 20210313, end: 20210326
  6. GLUTAMINE\SODIUM GUALENATE [Concomitant]
     Active Substance: GLUTAMINE\SODIUM GUALENATE
     Indication: Product used for unknown indication
     Dosage: 0.2 G
     Route: 048
     Dates: start: 20210127, end: 20210222

REACTIONS (13)
  - Pneumonia [Recovered/Resolved]
  - Productive cough [Unknown]
  - Respiratory failure [Recovered/Resolved]
  - Pneumonia aspiration [Not Recovered/Not Resolved]
  - Concomitant disease aggravated [Not Recovered/Not Resolved]
  - Bronchitis [Recovered/Resolved]
  - Hepatic function abnormal [Recovered/Resolved]
  - Aspartate aminotransferase increased [Recovered/Resolved]
  - Alanine aminotransferase increased [Recovered/Resolved]
  - Pyrexia [Recovered/Resolved]
  - White blood cell count decreased [Recovered/Resolved]
  - Vomiting [Not Recovered/Not Resolved]
  - Viral infection [Unknown]

NARRATIVE: CASE EVENT DATE: 20210131
